FAERS Safety Report 9464048 (Version 1)
Quarter: 2013Q3

REPORT INFORMATION
  Report Type: Report from Study
  Country: IN (occurrence: IN)
  Receive Date: 20130819
  Receipt Date: 20130819
  Transmission Date: 20140515
  Serious: Yes (Death, Hospitalization)
  Sender: FDA-Public Use
  Company Number: PHHY2013IN088776

PATIENT
  Age: 50 Year
  Sex: Female
  Weight: 38 kg

DRUGS (1)
  1. TASIGNA [Suspect]
     Indication: CHRONIC MYELOID LEUKAEMIA
     Dosage: 300 MG, BID
     Route: 048
     Dates: start: 20130807, end: 20130809

REACTIONS (3)
  - Death [Fatal]
  - General physical health deterioration [Unknown]
  - Heart rate decreased [Unknown]
